FAERS Safety Report 5006879-7 (Version None)
Quarter: 2006Q2

REPORT INFORMATION
  Report Type: 
  Country: None (occurrence: None)
  Receive Date: 20060516
  Receipt Date: 20060502
  Transmission Date: 20061013
  Serious: Yes (Hospitalization)
  Sender: FDA-Public Use
  Company Number: PAR_0627_2006

PATIENT
  Age: 58 Year
  Sex: Male

DRUGS (9)
  1. VERAPAMIL EXTENDED-RELEASE [Suspect]
     Indication: HYPERTENSION
     Dosage: 240 MG QD
  2. AZATHIOPRINE [Concomitant]
  3. RAMIPRIL [Concomitant]
  4. NICARDIPINE [Concomitant]
  5. PRAVASTATIN [Concomitant]
  6. CALCIUM CARBONATE [Concomitant]
  7. CITRATE [Concomitant]
  8. ZOPICLONE [Concomitant]
  9. DARBEPOETIN ALFA [Concomitant]

REACTIONS (5)
  - ATRIOVENTRICULAR BLOCK THIRD DEGREE [None]
  - HAEMODIALYSIS [None]
  - HYPERKALAEMIA [None]
  - NODAL RHYTHM [None]
  - SYNCOPE [None]
